FAERS Safety Report 10841395 (Version 2)
Quarter: 2015Q1

REPORT INFORMATION
  Report Type: Report from Study
  Country: US (occurrence: US)
  Receive Date: 20150220
  Receipt Date: 20150327
  Transmission Date: 20150721
  Serious: Yes (Other)
  Sender: FDA-Public Use
  Company Number: US-BEH-2015048833

PATIENT
  Age: 46 Year
  Sex: Female

DRUGS (1)
  1. HIZENTRA [Suspect]
     Active Substance: HUMAN IMMUNOGLOBULIN G
     Indication: IMMUNODEFICIENCY COMMON VARIABLE
     Dosage: START DATE APPROXIMATELY 3 YEARS AGO

REACTIONS (1)
  - Escherichia infection [Recovered/Resolved]

NARRATIVE: CASE EVENT DATE: 201412
